FAERS Safety Report 10967381 (Version 5)
Quarter: 2015Q2

REPORT INFORMATION
  Report Type: Spontaneous
  Country: US (occurrence: US)
  Receive Date: 20150330
  Receipt Date: 20150529
  Transmission Date: 20150821
  Serious: Yes (Life-Threatening, Hospitalization, Other)
  Sender: FDA-Public Use
  Company Number: US-PFIZER INC-2015107505

PATIENT
  Age: 74 Year
  Sex: Female
  Weight: 82 kg

DRUGS (18)
  1. ASPIRIN. [Concomitant]
     Active Substance: ASPIRIN
     Dosage: 81 MG, DAILY
     Dates: start: 2012
  2. OXYBUTYNIN [Concomitant]
     Active Substance: OXYBUTYNIN
     Indication: BLADDER DISORDER
     Dosage: 5 MG, 2X/DAY
  3. PREMARIN [Suspect]
     Active Substance: ESTROGENS, CONJUGATED
     Indication: VULVOVAGINAL PRURITUS
  4. OMEPRAZOLE. [Concomitant]
     Active Substance: OMEPRAZOLE
     Indication: OESOPHAGEAL DISORDER
     Dosage: 20 MG, AS NEEDED (ONE-TWO A DAY)
  5. PREMARIN [Suspect]
     Active Substance: ESTROGENS, CONJUGATED
     Indication: ATROPHIC VULVOVAGINITIS
     Dosage: 0.5 G, 2X/WEEK
     Route: 067
     Dates: start: 20120913, end: 20140507
  6. PRAVASTATIN [Concomitant]
     Active Substance: PRAVASTATIN\PRAVASTATIN SODIUM
     Dosage: 40 MG, A NIGHT
  7. LISINOPRIL. [Concomitant]
     Active Substance: LISINOPRIL
     Dosage: 5 MG, 1X/DAY (NIGHTLY)
  8. LASIX [Concomitant]
     Active Substance: FUROSEMIDE
     Dosage: 20 MG, FOUR TIMES A WEEK (MONDAY, WEDNESDAY, FRIDAY AND SATURDAY)
  9. METOPROLOL [Concomitant]
     Active Substance: METOPROLOL
     Dosage: 125 MG, 1X/DAY (NIGHTLY)
  10. LEXAPRO [Concomitant]
     Active Substance: ESCITALOPRAM OXALATE
     Dosage: 20 MG, 1X/DAY
  11. K-DUR [Concomitant]
     Active Substance: POTASSIUM CHLORIDE
     Dosage: 20 MG, 1X/DAY
  12. PREMARIN [Suspect]
     Active Substance: ESTROGENS, CONJUGATED
     Indication: VULVOVAGINAL DRYNESS
     Dosage: 0.5 MG, 2X/DAY
     Route: 067
     Dates: start: 2011, end: 2012
  13. VITAMIN D [Concomitant]
     Active Substance: CHOLECALCIFEROL
     Dosage: 1000 MG, 2X/DAY
  14. CRANBERRY. [Concomitant]
     Active Substance: CRANBERRY
     Dosage: 500 MG, 1X/DAY
  15. CALCIUM [Concomitant]
     Active Substance: CALCIUM
     Dosage: 500 MG, 1X/DAY
  16. PREMARIN [Suspect]
     Active Substance: ESTROGENS, CONJUGATED
     Indication: VULVOVAGINAL BURNING SENSATION
  17. KLONOPIN [Concomitant]
     Active Substance: CLONAZEPAM
     Indication: ANXIETY
     Dosage: 0.05 MG, 1X/DAY
  18. VITAMIN B12 [Concomitant]
     Active Substance: CYANOCOBALAMIN
     Dosage: 1000 MG, 1X/DAY

REACTIONS (10)
  - Carpal tunnel syndrome [Recovered/Resolved]
  - Breast cancer [Recovered/Resolved with Sequelae]
  - Speech disorder [Unknown]
  - Fall [Unknown]
  - Weight decreased [Recovered/Resolved]
  - Decreased appetite [Unknown]
  - Concussion [Unknown]
  - Ischaemic stroke [Recovering/Resolving]
  - Transient ischaemic attack [Unknown]
  - Cognitive disorder [Unknown]

NARRATIVE: CASE EVENT DATE: 201204
